FAERS Safety Report 24827527 (Version 3)
Quarter: 2025Q3

REPORT INFORMATION
  Report Type: Spontaneous
  Country: US (occurrence: US)
  Receive Date: 20250109
  Receipt Date: 20250904
  Transmission Date: 20251021
  Serious: No
  Sender: SANOFI AVENTIS
  Company Number: US-SA-2025SA006680

PATIENT
  Age: 23 Year
  Sex: Female

DRUGS (2)
  1. DUPIXENT [Suspect]
     Active Substance: DUPILUMAB
     Indication: Dermatitis atopic
     Dosage: 300 MG, QOW
     Route: 058
     Dates: start: 202410
  2. DUPIXENT [Suspect]
     Active Substance: DUPILUMAB
     Indication: Eczema

REACTIONS (4)
  - Dermatitis atopic [Unknown]
  - Rebound effect [Unknown]
  - Product dose omission issue [Unknown]
  - Product dispensing error [Unknown]

NARRATIVE: CASE EVENT DATE: 20250107
